FAERS Safety Report 8555926-4 (Version None)
Quarter: 2012Q3

REPORT INFORMATION
  Report Type: 
  Country: None (occurrence: None)
  Receive Date: 20120801
  Receipt Date: 20120724
  Transmission Date: 20120928
  Serious: No
  Sender: FDA-Public Use
  Company Number: US-BIOGENIDEC-2012BI027169

PATIENT
  Age: 52 Year
  Sex: Female

DRUGS (4)
  1. AVONEX [Suspect]
     Route: 030
     Dates: start: 20050607, end: 20080608
  2. AVONEX [Suspect]
     Indication: MULTIPLE SCLEROSIS
     Route: 030
  3. AVONEX [Suspect]
     Route: 030
     Dates: start: 20050607
  4. AVONEX [Suspect]
     Route: 030
     Dates: start: 20000101

REACTIONS (5)
  - SINUSITIS [None]
  - NAUSEA [None]
  - DRUG DOSE OMISSION [None]
  - HEADACHE [None]
  - FATIGUE [None]
